FAERS Safety Report 7729233-3 (Version None)
Quarter: 2011Q3

REPORT INFORMATION
  Report Type: 
  Country: None (occurrence: None)
  Receive Date: 20110906
  Receipt Date: 20110830
  Transmission Date: 20111222
  Serious: Yes (Other)
  Sender: FDA-Public Use
  Company Number: US-PFIZER INC-2011118830

PATIENT
  Sex: Female

DRUGS (10)
  1. XANAX [Concomitant]
     Indication: ANXIETY
     Dosage: UNK
     Dates: start: 20050101
  2. CHANTIX [Suspect]
     Indication: SMOKING CESSATION THERAPY
     Dosage: UNK,
     Dates: start: 20061001, end: 20080101
  3. ZOLOFT [Concomitant]
     Indication: DEPRESSION
     Dosage: UNK
     Dates: start: 20010101
  4. PREVACID [Concomitant]
     Indication: GASTROOESOPHAGEAL REFLUX DISEASE
     Dosage: UNK
     Dates: start: 20030101
  5. DOXYCYCLINE [Concomitant]
     Indication: BRONCHITIS
     Dosage: UNK
     Dates: start: 20050101
  6. LEVOTHYROXINE [Concomitant]
     Indication: HYPOTHYROIDISM
     Dosage: UNK
     Dates: start: 20010101
  7. ZOLOFT [Concomitant]
     Indication: ANXIETY
  8. CEPHALEXIN [Concomitant]
     Indication: BRONCHITIS
     Dosage: UNK
     Dates: start: 20050101
  9. PREDNISONE [Concomitant]
     Indication: BRONCHITIS
     Dosage: UNK
     Dates: start: 20050101
  10. PROMETHAZINE W/ CODEINE [Concomitant]
     Indication: BRONCHITIS
     Dosage: UNK
     Dates: start: 20050101

REACTIONS (3)
  - SUICIDE ATTEMPT [None]
  - ANXIETY [None]
  - DEPRESSION [None]
